FAERS Safety Report 25097898 (Version 1)
Quarter: 2025Q1

REPORT INFORMATION
  Report Type: Spontaneous
  Country: FR (occurrence: FR)
  Receive Date: 20250320
  Receipt Date: 20250320
  Transmission Date: 20250409
  Serious: Yes (Hospitalization)
  Sender: AUROBINDO
  Company Number: FR-LMS-2025000263

PATIENT
  Age: 75 Year
  Sex: Male

DRUGS (3)
  1. BISOPROLOL [Interacting]
     Active Substance: BISOPROLOL
     Indication: Product used for unknown indication
     Route: 065
  2. MONTMORILLONITE [Interacting]
     Active Substance: MONTMORILLONITE
     Indication: Product used for unknown indication
     Route: 065
  3. KARDEGIC [Interacting]
     Active Substance: ASPIRIN DL-LYSINE
     Indication: Product used for unknown indication
     Route: 065

REACTIONS (3)
  - Cardiac disorder [Unknown]
  - Labelled drug-drug interaction issue [Unknown]
  - Drug interaction [Unknown]

NARRATIVE: CASE EVENT DATE: 20241201
